FAERS Safety Report 22965765 (Version 3)
Quarter: 2023Q4

REPORT INFORMATION
  Report Type: Report from Study
  Country: FR (occurrence: FR)
  Receive Date: 20230921
  Receipt Date: 20231220
  Transmission Date: 20240110
  Serious: Yes (Hospitalization)
  Sender: FDA-Public Use
  Company Number: FR-INSMED, INC.-2023-03510-FR

PATIENT

DRUGS (1)
  1. ARIKAYCE [Suspect]
     Active Substance: AMIKACIN
     Indication: Atypical mycobacterial infection
     Dosage: 590 MILLIGRAM
     Route: 055
     Dates: start: 20221214, end: 20231010

REACTIONS (5)
  - Hospitalisation [Unknown]
  - Hospitalisation [Unknown]
  - Depression [Unknown]
  - General physical health deterioration [Unknown]
  - Therapy interrupted [Unknown]

NARRATIVE: CASE EVENT DATE: 20230101
